FAERS Safety Report 21112965 (Version 1)
Quarter: 2022Q3

REPORT INFORMATION
  Report Type: Spontaneous
  Country: US (occurrence: None)
  Receive Date: 20220721
  Receipt Date: 20220721
  Transmission Date: 20221027
  Serious: Yes (Life-Threatening, Hospitalization)
  Sender: FDA-Public Use
  Company Number: None

PATIENT
  Age: 55 Year
  Sex: Male

DRUGS (1)
  1. DILTIAZEM HYDROCHLORIDE [Suspect]
     Active Substance: DILTIAZEM HYDROCHLORIDE
     Indication: Atrial fibrillation
     Dosage: 60 MG ONCE PO
     Route: 048
     Dates: start: 20220509

REACTIONS (6)
  - Tachycardia [None]
  - Respiratory failure [None]
  - Cardio-respiratory arrest [None]
  - Road traffic accident [None]
  - Chest pain [None]
  - Rib fracture [None]

NARRATIVE: CASE EVENT DATE: 20220509
